FAERS Safety Report 9506671 (Version 1)
Quarter: 2013Q3

REPORT INFORMATION
  Report Type: Spontaneous
  Country: TR (occurrence: TR)
  Receive Date: 20130908
  Receipt Date: 20130908
  Transmission Date: 20140515
  Serious: Yes (Other)
  Sender: FDA-Public Use
  Company Number: TR-MYLANLABS-2013S1019572

PATIENT
  Age: 56 Year
  Sex: Male

DRUGS (1)
  1. VANCOMYCIN [Suspect]
     Indication: INCORRECT DRUG ADMINISTRATION RATE
     Dosage: PRESCRIBED 2X1G, WITHIN 1 HOUR IN 1GR 100CC NORMAL SALINE; MISTAKENLY GIVEN AT 10-15MIN INTERVALS
     Route: 042

REACTIONS (2)
  - Red man syndrome [Recovered/Resolved]
  - Incorrect drug administration rate [Recovered/Resolved]
